FAERS Safety Report 6132521-8 (Version None)
Quarter: 2009Q1

REPORT INFORMATION
  Report Type: 
  Country: None (occurrence: None)
  Receive Date: 20090324
  Receipt Date: 20090309
  Transmission Date: 20090719
  Serious: Yes (Life-Threatening)
  Sender: FDA-Public Use
  Company Number: 2009S1004383

PATIENT
  Age: 47 Year
  Sex: Male

DRUGS (4)
  1. BISOPROLOL FUMARATE [Suspect]
     Indication: HYPERTENSION
     Dosage: 5 MG; TWICE A DAY; ORAL
     Route: 048
  2. METAMIZOLE (METAMIZOLE) [Suspect]
     Indication: UPPER RESPIRATORY TRACT INFECTION
     Dosage: 30 GTT; DAILY; ORAL
     Route: 048
     Dates: start: 20090212, end: 20090212
  3. BENAZEPRIL HYDROCHLORIDE [Suspect]
     Indication: HYPERTENSION
     Dosage: 20 MG; DAILY; ORAL
     Route: 048
  4. SIMVASTATIN [Concomitant]

REACTIONS (5)
  - ANXIETY [None]
  - DIZZINESS [None]
  - DRUG INTERACTION [None]
  - DYSPNOEA [None]
  - HYPOTENSION [None]
